FAERS Safety Report 17878201 (Version 3)
Quarter: 2024Q4

REPORT INFORMATION
  Report Type: Spontaneous
  Country: US (occurrence: US)
  Receive Date: 20200610
  Receipt Date: 20241125
  Transmission Date: 20250114
  Serious: Yes (Hospitalization, Other)
  Sender: ADVANZ PHARMA
  Company Number: US-ADVANZ PHARMA-202005006268

PATIENT

DRUGS (7)
  1. PREDNISOLONE [Suspect]
     Active Substance: PREDNISOLONE
     Dosage: UNK UNK, WEEKLY (WEEKLY 4,3,2,1 PREDNISOLONE ACETATE 1% TAPER)
  2. LOTEPREDNOL ETABONATE [Suspect]
     Active Substance: LOTEPREDNOL ETABONATE
     Indication: Glaucoma
     Dosage: UNK, TID (THREE TIMES PER DAY IN THE LEFT EYE)
  3. INTERFERON ALFA-2B [Suspect]
     Active Substance: INTERFERON ALFA-2B
     Indication: Ocular surface squamous neoplasia
     Dosage: UNK UNK, QID
     Route: 061
  4. LATANOPROST [Suspect]
     Active Substance: LATANOPROST
     Indication: Glaucoma
     Dosage: UNK, QD (ONCE AT NIGHT IN THE LEFT EYE)
  5. DORZOLAMIDE [Suspect]
     Active Substance: DORZOLAMIDE
     Indication: Glaucoma
     Dosage: UNK, QD (ONCE IN THE MORNING IN THE LEFT EYE)
  6. DOXYCYCLINE [Concomitant]
     Active Substance: DOXYCYCLINE
     Dosage: UNK
     Route: 048
  7. VIGAMOX [Concomitant]
     Active Substance: MOXIFLOXACIN HYDROCHLORIDE
     Dosage: UNK, QID (FOUR TIMES PER DAY)

REACTIONS (3)
  - Ulcerative keratitis [Unknown]
  - Corneal perforation [Unknown]
  - Off label use [Unknown]
